FAERS Safety Report 14324567 (Version 1)
Quarter: 2017Q4

REPORT INFORMATION
  Report Type: Spontaneous
  Country: US (occurrence: US)
  Receive Date: 20171222
  Receipt Date: 20171222
  Transmission Date: 20180321
  Serious: Yes (Other)
  Sender: FDA-Public Use
  Company Number: None

PATIENT
  Age: 66 Year
  Sex: Female

DRUGS (1)
  1. GLATIRAMER 40MG/ML MYLAN [Suspect]
     Active Substance: GLATIRAMER
     Indication: MULTIPLE SCLEROSIS
     Route: 058
     Dates: start: 20171108, end: 20171220

REACTIONS (3)
  - Product substitution issue [None]
  - Flatulence [None]
  - Anal incontinence [None]

NARRATIVE: CASE EVENT DATE: 20171108
